FAERS Safety Report 9805444 (Version 1)
Quarter: 2014Q1

REPORT INFORMATION
  Report Type: Spontaneous
  Country: US (occurrence: US)
  Receive Date: 20140109
  Receipt Date: 20140109
  Transmission Date: 20141002
  Serious: No
  Sender: FDA-Public Use
  Company Number: US-009507513-1401USA001558

PATIENT
  Age: 45 Year
  Sex: Female

DRUGS (1)
  1. SAPHRIS [Suspect]
     Dosage: 5 MG, TID, RAPID DISSOLVE
     Route: 060
     Dates: start: 2011

REACTIONS (2)
  - Tooth discolouration [Not Recovered/Not Resolved]
  - Inappropriate schedule of drug administration [Unknown]
